FAERS Safety Report 7574430-3 (Version None)
Quarter: 2011Q2

REPORT INFORMATION
  Report Type: 
  Country: None (occurrence: None)
  Receive Date: 20110627
  Receipt Date: 20110601
  Transmission Date: 20111010
  Serious: No
  Sender: FDA-Public Use
  Company Number: US-B.I. PHARMACEUTICALS,INC./RIDGEFIELD-2011-BP-14438BP

PATIENT
  Sex: Male

DRUGS (11)
  1. VITAMIN D [Concomitant]
     Indication: VITAMIN SUPPLEMENTATION
     Route: 048
  2. POTASSIUM CHLORIDE [Concomitant]
     Indication: CARDIAC FAILURE CONGESTIVE
     Dosage: 10 MEQ
     Route: 048
  3. VITAMIN B1 TAB [Concomitant]
     Indication: VITAMIN SUPPLEMENTATION
     Route: 048
  4. PRADAXA [Suspect]
     Indication: ATRIAL FIBRILLATION
     Dosage: 300 MG
     Route: 048
     Dates: start: 20110401
  5. LASIX [Concomitant]
     Indication: CARDIAC FAILURE CONGESTIVE
     Dosage: 180 MG
     Route: 048
  6. WELCHOL [Concomitant]
     Indication: GOUT
     Dosage: 7500 MG
     Route: 048
  7. LOPRESSOR [Concomitant]
     Indication: CEREBROVASCULAR ACCIDENT
     Dosage: 25 MG
     Route: 048
  8. PREDNISONE [Concomitant]
     Indication: GOUT
     Dosage: 3 MG
     Route: 048
  9. ISOSORBIDE [Concomitant]
     Indication: GOUT
     Dosage: 30 MG
     Route: 048
  10. ASCORBIC ACID [Concomitant]
     Indication: VITAMIN SUPPLEMENTATION
     Route: 048
  11. VITAMIN B6 [Concomitant]
     Indication: VITAMIN SUPPLEMENTATION
     Route: 048

REACTIONS (2)
  - WEIGHT INCREASED [None]
  - NAUSEA [None]
